FAERS Safety Report 5906729-8 (Version None)
Quarter: 2008Q4

REPORT INFORMATION
  Report Type: 
  Country: None (occurrence: None)
  Receive Date: 20081002
  Receipt Date: 20080926
  Transmission Date: 20090506
  Serious: Yes (Hospitalization, Other)
  Sender: FDA-Public Use
  Company Number: US-MERCK-0707USA02679

PATIENT
  Age: 75 Year
  Sex: Female
  Weight: 61 kg

DRUGS (7)
  1. FOSAMAX [Suspect]
     Indication: OSTEOPOROSIS
     Route: 048
     Dates: start: 19980101, end: 20060605
  2. LESCOL [Concomitant]
     Indication: BLOOD CHOLESTEROL INCREASED
     Route: 065
     Dates: start: 19920101, end: 20000701
  3. NOVOLIN [Concomitant]
     Indication: DIABETES MELLITUS
     Route: 065
     Dates: start: 19670101
  4. LOTENSIN [Concomitant]
     Indication: HYPERTENSION
     Route: 065
     Dates: start: 19920101
  5. ADALAT CC [Concomitant]
     Route: 065
  6. GLUCOPHAGE [Concomitant]
     Route: 065
  7. TRENTAL [Concomitant]
     Route: 065

REACTIONS (35)
  - ABSCESS JAW [None]
  - ACUTE MYOCARDIAL INFARCTION [None]
  - ACUTE PULMONARY OEDEMA [None]
  - ARTERIAL INSUFFICIENCY [None]
  - ARTERIAL OCCLUSIVE DISEASE [None]
  - ARTHROPATHY [None]
  - ATRIAL FIBRILLATION [None]
  - BLOOD GLUCOSE DECREASED [None]
  - BUNDLE BRANCH BLOCK LEFT [None]
  - CARDIAC FAILURE [None]
  - CARDIAC VALVE DISEASE [None]
  - CAROTID ARTERY DISEASE [None]
  - CELLULITIS [None]
  - DRUG INEFFECTIVE [None]
  - DYSLIPIDAEMIA [None]
  - FEELING ABNORMAL [None]
  - FISTULA DISCHARGE [None]
  - ISCHAEMIC CARDIOMYOPATHY [None]
  - JAW FRACTURE [None]
  - LOBAR PNEUMONIA [None]
  - MICTURITION URGENCY [None]
  - MYOCARDIAL INFARCTION [None]
  - NEURALGIA [None]
  - OSTEOMYELITIS [None]
  - OSTEONECROSIS [None]
  - OSTEOPENIA [None]
  - POST PROCEDURAL HAEMORRHAGE [None]
  - RADIAL NERVE PALSY [None]
  - RETINOPATHY [None]
  - ROTATOR CUFF SYNDROME [None]
  - SKIN DISORDER [None]
  - SPINAL COMPRESSION FRACTURE [None]
  - URINARY TRACT INFECTION [None]
  - VASCULAR INSUFFICIENCY [None]
  - VASCULAR OCCLUSION [None]
